FAERS Safety Report 6123212-8 (Version None)
Quarter: 2009Q1

REPORT INFORMATION
  Report Type: 
  Country: None (occurrence: None)
  Receive Date: 20090318
  Receipt Date: 20010109
  Transmission Date: 20090719
  Serious: No
  Sender: FDA-Public Use
  Company Number: US-ABBOTT-08P-163-0449317-00

PATIENT

DRUGS (1)
  1. BIAXIN XL [Suspect]
     Indication: SINUSITIS

REACTIONS (2)
  - DIZZINESS [None]
  - TINNITUS [None]
